FAERS Safety Report 9724884 (Version 1)
Quarter: 2013Q4

REPORT INFORMATION
  Report Type: Spontaneous
  Country: US (occurrence: US)
  Receive Date: 20131202
  Receipt Date: 20131202
  Transmission Date: 20140711
  Serious: No
  Sender: FDA-Public Use
  Company Number: US-ENDO PHARMACEUTICALS INC.-OXYC20120048

PATIENT
  Age: 59 Year
  Sex: Male

DRUGS (4)
  1. OXYCODONE HCL 30MG [Suspect]
     Indication: BACK PAIN
     Route: 048
     Dates: start: 201208, end: 201209
  2. OXYCODONE HCL 30MG [Suspect]
     Indication: NECK PAIN
     Route: 048
     Dates: start: 201209
  3. OXYCODONE [Concomitant]
     Indication: BACK PAIN
     Route: 048
     Dates: start: 201111, end: 201208
  4. OXYCODONE [Concomitant]
     Indication: NECK PAIN

REACTIONS (2)
  - Inappropriate schedule of drug administration [Unknown]
  - Drug ineffective [Not Recovered/Not Resolved]
